FAERS Safety Report 5446262-3 (Version None)
Quarter: 2007Q3

REPORT INFORMATION
  Report Type: 
  Country: None (occurrence: None)
  Receive Date: 20070731
  Receipt Date: 20070216
  Transmission Date: 20080115
  Serious: Yes (Hospitalization)
  Sender: FDA-Public Use
  Company Number: US-2006-014356

PATIENT
  Age: 44 Year
  Sex: Female

DRUGS (1)
  1. MAGNEVIST [Suspect]
     Indication: NUCLEAR MAGNETIC RESONANCE IMAGING
     Dosage: 20 ML, 1 DOSE, INTRAVENOUS
     Route: 042
     Dates: start: 20060523, end: 20060523

REACTIONS (7)
  - AFFECT LABILITY [None]
  - AGITATION [None]
  - EYE SWELLING [None]
  - FLUSHING [None]
  - MALAISE [None]
  - NAUSEA [None]
  - PARAESTHESIA [None]
